FAERS Safety Report 8959130 (Version 1)
Quarter: 2012Q4

REPORT INFORMATION
  Report Type: 
  Country: GB (occurrence: GB)
  Receive Date: 20121212
  Receipt Date: 20121212
  Transmission Date: 20130627
  Serious: Yes (Hospitalization)
  Sender: FDA-Public Use
  Company Number: GB-009507513-1212GBR003279

PATIENT
  Age: 56 Year
  Sex: Male

DRUGS (3)
  1. VICTRELIS [Suspect]
     Dosage: UNK
     Route: 048
     Dates: start: 201211
  2. VIRAFERONPEG [Suspect]
     Dosage: UNK
     Route: 058
  3. RIBAVIRIN [Suspect]
     Route: 048

REACTIONS (2)
  - Haematemesis [Unknown]
  - Drug dose omission [Unknown]
